FAERS Safety Report 7844636-4 (Version None)
Quarter: 2011Q4

REPORT INFORMATION
  Report Type: 
  Country: None (occurrence: None)
  Receive Date: 20111025
  Receipt Date: 20111017
  Transmission Date: 20120403
  Serious: Yes (Death)
  Sender: FDA-Public Use
  Company Number: FR-JNJFOC-20110910189

PATIENT
  Sex: Male
  Weight: 75 kg

DRUGS (10)
  1. CELESTAMINE TAB [Concomitant]
     Route: 048
     Dates: start: 20110701
  2. RISPERDAL CONSTA [Suspect]
     Indication: SCHIZOPHRENIA, PARANOID TYPE
     Route: 030
     Dates: start: 20100708, end: 20110722
  3. ESIDRIX [Concomitant]
     Route: 048
     Dates: start: 20090201
  4. LOXAPINE HCL [Concomitant]
     Route: 048
     Dates: start: 20110301
  5. ATACAND [Concomitant]
     Route: 048
     Dates: start: 20090101
  6. BETAHISTINE [Concomitant]
     Route: 048
     Dates: start: 20110501
  7. POLYETHYLENE GLYCOL [Concomitant]
     Indication: LAXATIVE SUPPORTIVE CARE
     Route: 065
  8. LOVENOX [Concomitant]
     Route: 048
     Dates: start: 20110301
  9. AMLODIPINE [Concomitant]
     Route: 048
     Dates: start: 20081201
  10. VASTAREL [Concomitant]
     Route: 048
     Dates: start: 20110501

REACTIONS (1)
  - CARDIAC ARREST [None]
